FAERS Safety Report 18701660 (Version 1)
Quarter: 2021Q1

REPORT INFORMATION
  Report Type: Spontaneous
  Country: US (occurrence: US)
  Receive Date: 20210105
  Receipt Date: 20210105
  Transmission Date: 20210419
  Serious: No
  Sender: FDA-Public Use
  Company Number: None

PATIENT
  Age: 75 Year
  Sex: Female
  Weight: 31.01 kg

DRUGS (8)
  1. CAL?MINT [Concomitant]
  2. CAPECITABINE. [Suspect]
     Active Substance: CAPECITABINE
     Indication: PANCREATIC CARCINOMA
     Route: 048
     Dates: start: 20201204
  3. COENZYME Q10 [Concomitant]
     Active Substance: DIETARY SUPPLEMENT\UBIDECARENONE
  4. VITAMIN D3 [Concomitant]
     Active Substance: CHOLECALCIFEROL
  5. MULTI VITAMIN DAILY [Concomitant]
  6. BENAZEPRIL?HYDROCHLOROTHIAZIDE [Concomitant]
  7. PROBIOTIC [Concomitant]
     Active Substance: PROBIOTICS NOS
  8. BIOTIN [Concomitant]
     Active Substance: BIOTIN

REACTIONS (1)
  - Epigastric discomfort [None]
